FAERS Safety Report 17343049 (Version 1)
Quarter: 2020Q1

REPORT INFORMATION
  Report Type: Spontaneous
  Country: US (occurrence: US)
  Receive Date: 20200129
  Receipt Date: 20200129
  Transmission Date: 20200409
  Serious: No
  Sender: FDA-Public Use
  Company Number: US-ALLERGAN-1906516US

PATIENT
  Age: 60 Year
  Sex: Female

DRUGS (5)
  1. BOTOX COSMETIC [Suspect]
     Active Substance: ONABOTULINUMTOXINA
     Indication: SKIN WRINKLING
     Dosage: ACTUAL:5 UNITS TO CHIN AREA, 3 UNITS TO BROW, 4 UNTIS TO FOREHEAD
     Route: 030
     Dates: start: 20190108, end: 20190108
  2. BOTOX COSMETIC [Suspect]
     Active Substance: ONABOTULINUMTOXINA
     Indication: SKIN WRINKLING
  3. BOTOX COSMETIC [Suspect]
     Active Substance: ONABOTULINUMTOXINA
     Indication: SKIN WRINKLING
  4. BOTOX COSMETIC [Suspect]
     Active Substance: ONABOTULINUMTOXINA
     Indication: SKIN WRINKLING
     Dosage: ACTUAL: 25 TO GLABELLA 18 TO CROWS FEET 13 TO FORE HEAD, 6 ON EYEBROWS
     Route: 030
     Dates: start: 20181211, end: 20181211
  5. BOTOX COSMETIC [Suspect]
     Active Substance: ONABOTULINUMTOXINA
     Indication: SKIN WRINKLING

REACTIONS (5)
  - Off label use [Unknown]
  - Eye swelling [Unknown]
  - Off label use [Unknown]
  - Therapeutic response decreased [Unknown]
  - Contusion [Unknown]

NARRATIVE: CASE EVENT DATE: 20181211
